FAERS Safety Report 4264326-7 (Version None)
Quarter: 2004Q1

REPORT INFORMATION
  Report Type: 
  Country: None (occurrence: None)
  Receive Date: 20040102
  Receipt Date: 20031219
  Transmission Date: 20041129
  Serious: Yes (Death)
  Sender: FDA-Public Use
  Company Number: KDL047403

PATIENT

DRUGS (1)
  1. PROCRIT [Suspect]
     Indication: ANAEMIA OF MALIGNANT DISEASE
     Dosage: 20000 U, WEEKLY, SC
     Route: 058

REACTIONS (2)
  - CARCINOMA [None]
  - MALIGNANT NEOPLASM PROGRESSION [None]
